FAERS Safety Report 14203145 (Version 1)
Quarter: 2017Q4

REPORT INFORMATION
  Report Type: Spontaneous
  Country: PL (occurrence: PL)
  Receive Date: 20171120
  Receipt Date: 20171120
  Transmission Date: 20180321
  Serious: Yes (Other)
  Sender: FDA-Public Use
  Company Number: PL-ROCHE-2023906

PATIENT

DRUGS (1)
  1. RITUXIMAB. [Suspect]
     Active Substance: RITUXIMAB
     Indication: SYSTEMIC LUPUS ERYTHEMATOSUS
     Dosage: ADMINISTERED ON 1ST AND 14TH DAY
     Route: 065

REACTIONS (3)
  - Off label use [Unknown]
  - Systemic lupus erythematosus [Unknown]
  - Intentional product use issue [Unknown]
